FAERS Safety Report 25233401 (Version 2)
Quarter: 2025Q2

REPORT INFORMATION
  Report Type: Spontaneous
  Country: IE (occurrence: IE)
  Receive Date: 20250424
  Receipt Date: 20250505
  Transmission Date: 20250716
  Serious: Yes (Hospitalization, Other)
  Sender: EMD SERONO INC
  Company Number: None

PATIENT
  Age: 32 Year
  Sex: Female

DRUGS (4)
  1. FOLLITROPIN\LUTROPIN ALFA [Suspect]
     Active Substance: FOLLITROPIN\LUTROPIN ALFA
     Indication: Ovulation induction
  2. CETROTIDE [Suspect]
     Active Substance: CETRORELIX ACETATE
     Indication: Ovulation induction
  3. CHORIOGONADOTROPIN ALFA [Suspect]
     Active Substance: CHORIOGONADOTROPIN ALFA
     Indication: Oocyte harvest
  4. BUSERELIN ACETATE [Suspect]
     Active Substance: BUSERELIN ACETATE
     Indication: Oocyte harvest

REACTIONS (1)
  - Ovarian hyperstimulation syndrome [Recovered/Resolved]

NARRATIVE: CASE EVENT DATE: 20250313
